FAERS Safety Report 13652982 (Version 1)
Quarter: 2017Q2

REPORT INFORMATION
  Report Type: Spontaneous
  Country: US (occurrence: US)
  Receive Date: 20170614
  Receipt Date: 20170614
  Transmission Date: 20170830
  Serious: No
  Sender: FDA-Public Use
  Company Number: US-ROCHE-1334377

PATIENT
  Age: 78 Year
  Sex: Female

DRUGS (5)
  1. XELODA [Suspect]
     Active Substance: CAPECITABINE
     Indication: RECTOSIGMOID CANCER
     Dosage: 2TABS, NID 14 DAYS ON, 7 DAYS OFF
     Route: 048
     Dates: start: 20130516
  2. PREMARIN [Concomitant]
     Active Substance: ESTROGENS, CONJUGATED
  3. PROCHLORPERAZINE. [Concomitant]
     Active Substance: PROCHLORPERAZINE
  4. MEDLINE REMEDY CALAZIME PROTECTANT PASTE [Concomitant]
  5. AMLODIPINE [Concomitant]
     Active Substance: AMLODIPINE BESYLATE

REACTIONS (1)
  - Alopecia [Unknown]

NARRATIVE: CASE EVENT DATE: 20140114
